FAERS Safety Report 6698559-7 (Version None)
Quarter: 2010Q2

REPORT INFORMATION
  Report Type: 
  Country: None (occurrence: None)
  Receive Date: 20100427
  Receipt Date: 20100419
  Transmission Date: 20101027
  Serious: Yes (Death)
  Sender: FDA-Public Use
  Company Number: US-AMGEN-QUU406982

PATIENT
  Sex: Male

DRUGS (3)
  1. NPLATE [Suspect]
     Indication: THROMBOCYTOPENIA
     Dates: start: 20090409
  2. RITUXIMAB [Concomitant]
     Dates: start: 20060101
  3. IMMU-G [Concomitant]
     Dates: start: 20090404

REACTIONS (1)
  - DEATH [None]
